FAERS Safety Report 4985242-9 (Version None)
Quarter: 2006Q2

REPORT INFORMATION
  Report Type: 
  Country: None (occurrence: None)
  Receive Date: 20060427
  Receipt Date: 20050930
  Transmission Date: 20061013
  Serious: Yes (Hospitalization)
  Sender: FDA-Public Use
  Company Number: US-MERCK-0510USA00124

PATIENT
  Age: 68 Year
  Sex: Female
  Weight: 71 kg

DRUGS (16)
  1. VIOXX [Suspect]
     Indication: ARTHRITIS
     Route: 048
     Dates: end: 20040801
  2. CLONIDINE [Concomitant]
     Indication: HYPERTENSION
     Route: 048
     Dates: start: 19830101
  3. PLETAL [Concomitant]
     Indication: VASCULAR INSUFFICIENCY
     Route: 048
  4. WELLBUTRIN [Concomitant]
     Indication: NERVOUSNESS
     Route: 065
  5. WELLBUTRIN [Concomitant]
     Indication: EX-SMOKER
     Route: 065
  6. TIMOPTIC [Concomitant]
     Indication: GLAUCOMA
     Route: 047
     Dates: start: 19850101
  7. BETOPTIC [Concomitant]
     Indication: GLAUCOMA
     Route: 065
     Dates: start: 19850101
  8. ALLEGRA [Concomitant]
     Indication: HYPERSENSITIVITY
     Route: 065
  9. ASPIRIN [Concomitant]
     Route: 048
  10. PAMINE [Concomitant]
     Indication: DIARRHOEA
     Route: 048
  11. ALPHAGAN [Concomitant]
     Indication: GLAUCOMA
     Route: 047
  12. MELATONINA [Concomitant]
     Indication: SLEEP DISORDER
     Route: 065
  13. LIPITOR [Concomitant]
     Indication: LIPIDS INCREASED
     Route: 065
  14. NEXIUM [Concomitant]
     Indication: GASTROOESOPHAGEAL REFLUX DISEASE
     Route: 065
  15. NEXIUM [Concomitant]
     Indication: ABDOMINAL DISCOMFORT
     Route: 065
  16. ZYRTEC [Concomitant]
     Indication: HYPERSENSITIVITY
     Route: 065

REACTIONS (8)
  - ACUTE MYOCARDIAL INFARCTION [None]
  - BLOOD CHOLESTEROL INCREASED [None]
  - CEREBROVASCULAR ACCIDENT [None]
  - HEMIPARESIS [None]
  - PNEUMONIA [None]
  - PNEUMONIA HAEMOPHILUS [None]
  - SINUSITIS [None]
  - URINARY INCONTINENCE [None]
